FAERS Safety Report 25489288 (Version 2)
Quarter: 2025Q3

REPORT INFORMATION
  Report Type: Spontaneous
  Country: JP (occurrence: JP)
  Receive Date: 20250627
  Receipt Date: 20250703
  Transmission Date: 20251021
  Serious: Yes (Death, Life-Threatening, Hospitalization)
  Sender: DAIICHI
  Company Number: JP-DSJP-DS-2025-148797-JPAA

PATIENT
  Age: 78 Year
  Sex: Male
  Weight: 68.6 kg

DRUGS (2)
  1. ENHERTU [Suspect]
     Active Substance: FAM-TRASTUZUMAB DERUXTECAN-NXKI
     Indication: HER2 positive gastric cancer
     Dosage: 6.4 MG/KG, ONCE EVERY 3 WK
     Route: 041
     Dates: start: 20250508, end: 20250508
  2. ENHERTU [Suspect]
     Active Substance: FAM-TRASTUZUMAB DERUXTECAN-NXKI
     Dosage: 6.4 MG/KG, ONCE EVERY 3 WK
     Route: 041
     Dates: start: 20250529, end: 20250529

REACTIONS (3)
  - Malaise [Unknown]
  - Decreased appetite [Unknown]
  - Disease progression [Fatal]

NARRATIVE: CASE EVENT DATE: 20250101
